FAERS Safety Report 5934908-2 (Version None)
Quarter: 2008Q4

REPORT INFORMATION
  Report Type: 
  Country: None (occurrence: None)
  Receive Date: 20081027
  Receipt Date: 20081012
  Transmission Date: 20090506
  Serious: Yes (Hospitalization)
  Sender: FDA-Public Use
  Company Number: CIP08002173

PATIENT
  Age: 43 Year
  Sex: Female
  Weight: 71.2 kg

DRUGS (5)
  1. ASACOL [Suspect]
     Indication: COLITIS
     Dosage: 800 MG, 3 TIMES DAILY, ORAL
     Route: 048
     Dates: start: 20080620, end: 20080709
  2. PREDNISONE [Concomitant]
  3. LEVAQUIN [Concomitant]
  4. FLAGYL [Concomitant]
  5. XIFAXAN (RIFAXIMIN) [Concomitant]

REACTIONS (3)
  - BLOOD THYROID STIMULATING HORMONE DECREASED [None]
  - MIGRAINE [None]
  - THYROXINE FREE INCREASED [None]
